FAERS Safety Report 21729661 (Version 1)
Quarter: 2022Q4

REPORT INFORMATION
  Report Type: Spontaneous
  Country: US (occurrence: US)
  Receive Date: 20221214
  Receipt Date: 20221214
  Transmission Date: 20230113
  Serious: No
  Sender: FDA-Public Use
  Company Number: US-PERRIGO-21US032979

PATIENT
  Age: 34 Year
  Sex: Female
  Weight: 108.84 kg

DRUGS (4)
  1. TIOCONAZOLE [Suspect]
     Active Substance: TIOCONAZOLE
     Indication: Vulvovaginal mycotic infection
     Dosage: UNKNOWN, SINGLE
     Route: 067
     Dates: start: 20211220, end: 20211220
  2. TIOCONAZOLE [Suspect]
     Active Substance: TIOCONAZOLE
     Dosage: 300 MG, SINGLE
     Route: 067
     Dates: start: 20211222, end: 20211222
  3. LORAZEPAM [Concomitant]
     Active Substance: LORAZEPAM
     Indication: Anxiety
     Dosage: 1 MG, BID
     Route: 065
     Dates: start: 2016
  4. ADDERALL [Concomitant]
     Active Substance: AMPHETAMINE ASPARTATE\AMPHETAMINE SULFATE\DEXTROAMPHETAMINE SACCHARATE\DEXTROAMPHETAMINE SULFATE
     Indication: Attention deficit hyperactivity disorder
     Dosage: 10 MG
     Route: 065
     Dates: start: 2011

REACTIONS (3)
  - Drug ineffective [Unknown]
  - Underdose [Recovered/Resolved]
  - Product administration error [Recovered/Resolved]

NARRATIVE: CASE EVENT DATE: 20211220
